FAERS Safety Report 22209128 (Version 3)
Quarter: 2023Q2

REPORT INFORMATION
  Report Type: Spontaneous
  Country: TT (occurrence: TT)
  Receive Date: 20230413
  Receipt Date: 20230519
  Transmission Date: 20230722
  Serious: Yes (Hospitalization, Other)
  Sender: FDA-Public Use
  Company Number: TT-009507513-2304TTO002634

PATIENT
  Age: 58 Year
  Sex: Male
  Weight: 108.2 kg

DRUGS (7)
  1. KEYTRUDA [Suspect]
     Active Substance: PEMBROLIZUMAB
     Indication: Lung cancer metastatic
     Dosage: 100 MILLIGRAM, CYCLICAL
     Dates: start: 20230314, end: 20230314
  2. KEYTRUDA [Suspect]
     Active Substance: PEMBROLIZUMAB
     Dosage: 100 MILLIGRAM, CYCLICAL
     Dates: start: 20230405, end: 20230405
  3. CRESTOR [Concomitant]
     Active Substance: ROSUVASTATIN CALCIUM
     Dosage: 20 MILLIGRAM (MG), ONE A DAY (QD) (ALSO REPORTED AS 1/DAY)
  4. ATACAND [Concomitant]
     Active Substance: CANDESARTAN CILEXETIL
     Dosage: 16 MILLIGRAM, 1/DAY (QD)
  5. ENOXAPARIN SODIUM [Concomitant]
     Active Substance: ENOXAPARIN SODIUM
     Dosage: 100 MILLIGRAM, 2/DAY (BID)
  6. AMARYL [Concomitant]
     Active Substance: GLIMEPIRIDE
     Dosage: STRENGTH: 4/1000 (UNITS NOT PROVIDED); 2/DAY (BID); 1 DOSAGE FORM
  7. SYMBICORT [Concomitant]
     Active Substance: BUDESONIDE\FORMOTEROL FUMARATE DIHYDRATE
     Dosage: DOSE 160 (UNITS NOT REPORTED); 2 CLICKS TWICE A DAY (BID)

REACTIONS (3)
  - Supraventricular tachycardia [Unknown]
  - Incorrect dose administered [Unknown]
  - Inappropriate schedule of product administration [Unknown]

NARRATIVE: CASE EVENT DATE: 20230314
